FAERS Safety Report 16360662 (Version 2)
Quarter: 2019Q3

REPORT INFORMATION
  Report Type: Spontaneous
  Country: DE (occurrence: DE)
  Receive Date: 20190528
  Receipt Date: 20190925
  Transmission Date: 20191004
  Serious: Yes (Other)
  Sender: FDA-Public Use
  Company Number: DE-BAUSCH-BL-2019-012957

PATIENT
  Sex: Female

DRUGS (1)
  1. MIOCHOL E [Suspect]
     Active Substance: ACETYLCHOLINE CHLORIDE
     Indication: PRODUCT USED FOR UNKNOWN INDICATION
     Dosage: STRENGTH: 20MG/2ML, INTRAOCULAR SOLUTION
     Route: 031

REACTIONS (3)
  - Corneal opacity [Not Recovered/Not Resolved]
  - Infection [Not Recovered/Not Resolved]
  - Product quality issue [Unknown]
